FAERS Safety Report 21562254 (Version 1)
Quarter: 2022Q4

REPORT INFORMATION
  Report Type: Spontaneous
  Country: HU (occurrence: HU)
  Receive Date: 20221107
  Receipt Date: 20221107
  Transmission Date: 20230112
  Serious: Yes (Other)
  Sender: FDA-Public Use
  Company Number: HU-002147023-NVSC2022HU165382

PATIENT
  Age: 81 Year
  Sex: Female

DRUGS (1)
  1. EPIRUBICIN [Suspect]
     Active Substance: EPIRUBICIN
     Indication: Breast angiosarcoma metastatic
     Dosage: UNK (ONE CYCLE WAS RECEIVED)
     Route: 065

REACTIONS (3)
  - Condition aggravated [Unknown]
  - Breast angiosarcoma metastatic [Unknown]
  - Drug ineffective for unapproved indication [Unknown]
